FAERS Safety Report 26199392 (Version 1)
Quarter: 2025Q4

REPORT INFORMATION
  Report Type: Spontaneous
  Country: US (occurrence: US)
  Receive Date: 20251225
  Receipt Date: 20251225
  Transmission Date: 20260117
  Serious: Yes (Death, Hospitalization, Other)
  Sender: TEVA
  Company Number: US-TEVA-VS-3403666

PATIENT
  Age: 39 Year
  Sex: Female

DRUGS (3)
  1. SPIRONOLACTONE [Suspect]
     Active Substance: SPIRONOLACTONE
     Indication: Cardiac dysfunction
     Route: 065
     Dates: start: 2024
  2. DAUNORUBICIN [Suspect]
     Active Substance: DAUNORUBICIN
     Indication: Acute myeloid leukaemia
     Dosage: 7+3 INDUCTION WITH CYTARABINE AND TOTAL DOSE OF DAUNORUBICIN
     Route: 065
     Dates: start: 202310
  3. CYTARABINE [Concomitant]
     Active Substance: CYTARABINE
     Indication: Acute myeloid leukaemia
     Dosage: 7+3 INDUCTION WITH CYTARABINE AND TOTAL DOSE OF DAUNORUBICIN
     Route: 065
     Dates: start: 202310

REACTIONS (11)
  - Drug ineffective [Fatal]
  - Hypotension [Unknown]
  - Drug intolerance [Unknown]
  - Cardiomyopathy [Fatal]
  - Septic shock [Fatal]
  - Cardiac arrest [Fatal]
  - Cardiogenic shock [Fatal]
  - Left ventricular dysfunction [Unknown]
  - Hypoperfusion [Fatal]
  - Arrhythmia supraventricular [Unknown]
  - Lung disorder [Unknown]
